FAERS Safety Report 25495184 (Version 1)
Quarter: 2025Q2

REPORT INFORMATION
  Report Type: Spontaneous
  Country: CN (occurrence: CN)
  Receive Date: 20250630
  Receipt Date: 20250630
  Transmission Date: 20250716
  Serious: Yes (Other)
  Sender: PFIZER
  Company Number: CN-PFIZER INC-PV202500077019

PATIENT
  Age: 32 Year
  Sex: Male

DRUGS (1)
  1. VORICONAZOLE [Suspect]
     Active Substance: VORICONAZOLE
     Indication: Anti-infective therapy
     Dosage: 400 MG, 1X/DAY
     Route: 041
     Dates: start: 20250610, end: 20250617

REACTIONS (4)
  - Abnormal dreams [Recovered/Resolved]
  - Erythropsia [Recovered/Resolved]
  - Chloropsia [Recovered/Resolved]
  - Off label use [Unknown]

NARRATIVE: CASE EVENT DATE: 20250610
